FAERS Safety Report 6710162-9 (Version None)
Quarter: 2010Q2

REPORT INFORMATION
  Report Type: 
  Country: None (occurrence: None)
  Receive Date: 20100504
  Receipt Date: 20100426
  Transmission Date: 20101027
  Serious: Yes (Death, Hospitalization)
  Sender: FDA-Public Use
  Company Number: FR-BRISTOL-MYERS SQUIBB COMPANY-15078231

PATIENT
  Age: 57 Year
  Sex: Male

DRUGS (1)
  1. CARMUSTINE [Suspect]
     Indication: GLIOBLASTOMA
     Dosage: SIX IMPLANTS

REACTIONS (2)
  - BRAIN ABSCESS [None]
  - SEPSIS [None]
